FAERS Safety Report 4408645-X (Version None)
Quarter: 2004Q3

REPORT INFORMATION
  Report Type: 
  Country: None (occurrence: None)
  Receive Date: 20040723
  Receipt Date: 20040711
  Transmission Date: 20050211
  Serious: Yes (Hospitalization, Disabling)
  Sender: FDA-Public Use
  Company Number: 2004-0007252

PATIENT
  Age: 32 Year
  Sex: Male

DRUGS (5)
  1. TENOFOVIR DISOPROXIL FUMARATE      (TENOFOVIR DISOPROXIL FUMARATE) [Suspect]
     Indication: HIV INFECTION
     Dosage: 300 MG, 1 IN 1 D, ORAL
     Route: 048
     Dates: start: 20020722, end: 20040528
  2. VIDEX [Concomitant]
  3. REYATAZ [Concomitant]
  4. KALETRA [Concomitant]
  5. PARIET (RABEPRAZOLE) [Concomitant]

REACTIONS (8)
  - BACK PAIN [None]
  - BLOOD ALKALINE PHOSPHATASE INCREASED [None]
  - BLOOD URIC ACID DECREASED [None]
  - FANCONI SYNDROME ACQUIRED [None]
  - HYPERPHOSPHATAEMIA [None]
  - HYPOCALCAEMIA [None]
  - MALAISE [None]
  - OSTEOMALACIA [None]
